FAERS Safety Report 6766177-8 (Version None)
Quarter: 2010Q2

REPORT INFORMATION
  Report Type: 
  Country: None (occurrence: None)
  Receive Date: 20100611
  Receipt Date: 20100602
  Transmission Date: 20101027
  Serious: Yes (Life-Threatening)
  Sender: FDA-Public Use
  Company Number: FR-PFIZER INC-2010069566

PATIENT
  Age: 90 Year
  Sex: Female

DRUGS (8)
  1. ALDACTONE [Suspect]
     Indication: CARDIAC FAILURE
     Dosage: 25 MG, 2X/DAY
     Route: 048
     Dates: end: 20090609
  2. CALCIPARINE [Suspect]
     Indication: DEEP VEIN THROMBOSIS
     Dosage: 5000 IU, 2X/DAY
     Route: 058
     Dates: start: 20090506, end: 20090612
  3. KARDEGIC [Suspect]
     Dosage: 75 MG, 1X/DAY
     Route: 048
     Dates: start: 20090506, end: 20090612
  4. PREVISCAN [Suspect]
     Indication: MYOCARDIAL ISCHAEMIA
     Dosage: 10 MG, 1X/DAY
     Route: 048
     Dates: start: 20090609, end: 20090612
  5. LASIX [Suspect]
     Indication: CARDIAC FAILURE
     Dosage: 250 MG, 1X/DAY
     Route: 048
     Dates: start: 20090521, end: 20090609
  6. LEVOTHYROXINE SODIUM [Concomitant]
     Indication: HYPOTHYROIDISM
     Dosage: 75 A?G
     Route: 048
  7. ZYLORIC ^FAES^ [Concomitant]
     Dosage: 100 MG
     Route: 048
  8. DAFALGAN [Concomitant]
     Route: 048

REACTIONS (3)
  - ACTIVATED PARTIAL THROMBOPLASTIN TIME PROLONGED [None]
  - HAEMATOCRIT DECREASED [None]
  - HAEMOGLOBIN DECREASED [None]
